FAERS Safety Report 5509207-3 (Version None)
Quarter: 2007Q4

REPORT INFORMATION
  Report Type: 
  Country: None (occurrence: None)
  Receive Date: 20071031
  Receipt Date: 20070623
  Transmission Date: 20080405
  Serious: No
  Sender: FDA-Public Use
  Company Number: 2007PV033053

PATIENT
  Age: 62 Year
  Sex: Female
  Weight: 110.6777 kg

DRUGS (6)
  1. SYMLIN [Suspect]
     Indication: TYPE 2 DIABETES MELLITUS
     Dosage: 60 MCG;TID;SC  : 90 MCG;TID;SC
     Route: 058
     Dates: start: 20070622, end: 20070723
  2. SYMLIN [Suspect]
     Indication: TYPE 2 DIABETES MELLITUS
     Dosage: 60 MCG;TID;SC  : 90 MCG;TID;SC
     Route: 058
     Dates: start: 20070723
  3. LANTUS [Concomitant]
  4. NOVOLIN N [Concomitant]
  5. NOVOLOG [Concomitant]
  6. LANTUS [Concomitant]

REACTIONS (4)
  - BLOOD GLUCOSE INCREASED [None]
  - DRUG EFFECT DECREASED [None]
  - EARLY SATIETY [None]
  - SINUSITIS [None]
